FAERS Safety Report 9285047 (Version 3)
Quarter: 2013Q3

REPORT INFORMATION
  Report Type: Spontaneous
  Country: US (occurrence: US)
  Receive Date: 20130513
  Receipt Date: 20130701
  Transmission Date: 20140515
  Serious: Yes (Hospitalization, Other)
  Sender: FDA-Public Use
  Company Number: US-JNJFOC-20130500883

PATIENT
  Age: 72 Year
  Sex: Male

DRUGS (1)
  1. ZYTIGA [Suspect]
     Indication: PRODUCT USED FOR UNKNOWN INDICATION
     Dosage: 250 MG X 4
     Route: 048
     Dates: start: 20130221, end: 20130309

REACTIONS (3)
  - Renal failure acute [Unknown]
  - Condition aggravated [Unknown]
  - Prostatic specific antigen abnormal [Unknown]
